FAERS Safety Report 7605998-6 (Version None)
Quarter: 2011Q3

REPORT INFORMATION
  Report Type: 
  Country: None (occurrence: None)
  Receive Date: 20110713
  Receipt Date: 20110629
  Transmission Date: 20111222
  Serious: Yes (Other)
  Sender: FDA-Public Use
  Company Number: PHHY2011FR57425

PATIENT
  Age: 72 Year
  Sex: Male

DRUGS (1)
  1. RASILEZ HCT [Suspect]
     Dosage: 1 DF, UNK
     Route: 048
     Dates: start: 20101129

REACTIONS (3)
  - CHEST PAIN [None]
  - ANGINA PECTORIS [None]
  - SENSATION OF HEAVINESS [None]
